FAERS Safety Report 9566018 (Version 1)
Quarter: 2013Q3

REPORT INFORMATION
  Report Type: Report from Study
  Country: JP (occurrence: JP)
  Receive Date: 20130930
  Receipt Date: 20130930
  Transmission Date: 20140515
  Serious: Yes (Other)
  Sender: FDA-Public Use
  Company Number: JP-GILEAD-2013-0084462

PATIENT
  Sex: Male

DRUGS (8)
  1. EMTRICITABINE/TENOFOVIR DISOPROXIL FUMARATE [Suspect]
     Indication: HIV INFECTION
     Dosage: 1 DF, QD
     Route: 048
     Dates: start: 20060408
  2. PREDNISOLONE [Suspect]
     Indication: MYASTHENIA GRAVIS
     Dosage: 8 UNK, UNK
     Route: 048
     Dates: start: 20120215
  3. PREDNISOLONE [Suspect]
     Dosage: 10 MG, QD
     Route: 048
     Dates: start: 20070901, end: 20120214
  4. EPIVIR [Concomitant]
     Indication: HIV INFECTION
     Dosage: 150 MG, BID
     Route: 048
     Dates: start: 20030124, end: 20060407
  5. STOCRIN [Concomitant]
     Indication: HIV INFECTION
     Dosage: 600 MG, QD
     Route: 048
     Dates: start: 20030124, end: 20100119
  6. ZERIT [Concomitant]
     Indication: HIV INFECTION
     Dosage: 80 UNK, UNK
     Route: 048
     Dates: start: 20040315, end: 20060407
  7. ZERIT [Concomitant]
     Dosage: 60 MG, QD
     Route: 048
     Dates: start: 20030124, end: 20040314
  8. NEORAL [Concomitant]
     Indication: MYASTHENIA GRAVIS
     Dosage: 235 MG, QD
     Route: 048
     Dates: start: 20071116

REACTIONS (1)
  - Osteoporosis [Not Recovered/Not Resolved]
